FAERS Safety Report 11139723 (Version 1)
Quarter: 2015Q2

REPORT INFORMATION
  Report Type: Spontaneous
  Country: US (occurrence: US)
  Receive Date: 20150527
  Receipt Date: 20150527
  Transmission Date: 20150821
  Serious: Yes (Other)
  Sender: FDA-Public Use
  Company Number: US-PFIZER INC-2015173006

PATIENT
  Age: 64 Year
  Sex: Female
  Weight: 62.59 kg

DRUGS (6)
  1. OMEPRAZOLE. [Concomitant]
     Active Substance: OMEPRAZOLE
     Indication: ABDOMINAL DISCOMFORT
     Dosage: 20 MG, 1X/DAY
  2. VALACYCLOVIR [Concomitant]
     Active Substance: VALACYCLOVIR HYDROCHLORIDE
     Dosage: 1000 MG, 1X/DAY
  3. PRISTIQ EXTENDED RELEASE [Suspect]
     Active Substance: DESVENLAFAXINE SUCCINATE
     Indication: DEPRESSION
     Dosage: 50 MG, 1X/DAY
  4. FOSAMAX [Concomitant]
     Active Substance: ALENDRONATE SODIUM
     Indication: BONE DISORDER
     Dosage: 70 MG, UNK
  5. FLUTICASONE [Concomitant]
     Active Substance: FLUTICASONE\FLUTICASONE PROPIONATE
     Dosage: 2 DF, 1X/DAY (2 SPRAYS IN EACH NOSTRIL)
     Route: 045
  6. ZINC [Concomitant]
     Active Substance: ZINC\ZINC CHLORIDE
     Dosage: UNK

REACTIONS (11)
  - Blood cholesterol increased [Unknown]
  - Diarrhoea [Unknown]
  - Hyperhidrosis [Unknown]
  - Malaise [Unknown]
  - Thinking abnormal [Unknown]
  - Depressed mood [Unknown]
  - Liver disorder [Unknown]
  - Nausea [Unknown]
  - Disorientation [Unknown]
  - Glaucoma [Recovering/Resolving]
  - Dizziness [Unknown]
